FAERS Safety Report 14479384 (Version 2)
Quarter: 2019Q2

REPORT INFORMATION
  Report Type: Spontaneous
  Country: US (occurrence: US)
  Receive Date: 20180202
  Receipt Date: 20190409
  Transmission Date: 20190711
  Serious: Yes (Hospitalization)
  Sender: FDA-Public Use
  Company Number: US-B.I. PHARMACEUTICALS,INC./RIDGEFIELD-2016-BI-069365

PATIENT
  Age: 74 Year
  Sex: Male
  Weight: 79.37 kg

DRUGS (25)
  1. SALAGEN [Concomitant]
     Active Substance: PILOCARPINE HYDROCHLORIDE
     Indication: PRODUCT USED FOR UNKNOWN INDICATION
     Route: 048
  2. KEFLEX [Concomitant]
     Active Substance: CEPHALEXIN
     Indication: PRODUCT USED FOR UNKNOWN INDICATION
     Dosage: TAKE 4 CAPS ONE HOUR PRIOR TO DENTAL WORK AND TAKE 2 CAPS 6 HOURS LATER
     Route: 065
  3. PERIDEX [Concomitant]
     Active Substance: CHLORHEXIDINE GLUCONATE
     Indication: PRODUCT USED FOR UNKNOWN INDICATION
     Dosage: 0.12% SOLUTION
     Route: 048
  4. ALDACTONE [Concomitant]
     Active Substance: SPIRONOLACTONE
     Indication: PRODUCT USED FOR UNKNOWN INDICATION
     Route: 048
  5. VITAMIN E-400 [Concomitant]
     Indication: PRODUCT USED FOR UNKNOWN INDICATION
     Route: 048
  6. COZAAR [Concomitant]
     Active Substance: LOSARTAN POTASSIUM
     Indication: PRODUCT USED FOR UNKNOWN INDICATION
     Route: 048
  7. NAMENDA [Concomitant]
     Active Substance: MEMANTINE HYDROCHLORIDE
     Indication: PRODUCT USED FOR UNKNOWN INDICATION
     Route: 048
  8. ALLEGRA [Concomitant]
     Active Substance: FEXOFENADINE HYDROCHLORIDE
     Indication: PRODUCT USED FOR UNKNOWN INDICATION
     Route: 048
  9. GRAPE SEED EXTRACT [Concomitant]
     Active Substance: DIETARY SUPPLEMENT\GRAPE SEED EXTRACT
     Indication: PRODUCT USED FOR UNKNOWN INDICATION
     Route: 048
  10. PRADAXA [Suspect]
     Active Substance: DABIGATRAN ETEXILATE MESYLATE
     Indication: ATRIAL FIBRILLATION
     Route: 065
     Dates: start: 20120622, end: 20141215
  11. NAPROXEN. [Concomitant]
     Active Substance: NAPROXEN
     Indication: ARTHRALGIA
     Route: 065
  12. NORVASC [Concomitant]
     Active Substance: AMLODIPINE BESYLATE
     Indication: PRODUCT USED FOR UNKNOWN INDICATION
     Route: 048
  13. EXELON [Concomitant]
     Active Substance: RIVASTIGMINE TARTRATE
     Indication: PRODUCT USED FOR UNKNOWN INDICATION
     Dosage: 9.5 MG/24 HR PT 24 TRANSDERMAL PATCH
     Route: 062
  14. MS CONTIN [Concomitant]
     Active Substance: MORPHINE SULFATE
     Indication: PRODUCT USED FOR UNKNOWN INDICATION
     Dosage: TAKE 1 TABLET BY MOUTH 2-3 TIMES DAILY ?TAKE EVERY 8-12 HOURS, DEPENDING ON PAIN SEVERITY
     Route: 048
  15. MSIR [Concomitant]
     Active Substance: MORPHINE SULFATE
     Indication: BREAKTHROUGH PAIN
     Dosage: TAKE 1 TAB BY MOUTH EVERY 4 HOURS AS NEEDED FOR PAIN , FOR BREAKTHROUGH PAIN
     Route: 048
  16. MULTIVITAMIN + MINERAL [Concomitant]
     Active Substance: MINERALS\VITAMINS
     Indication: PRODUCT USED FOR UNKNOWN INDICATION
     Route: 048
  17. NITROSTAT [Concomitant]
     Active Substance: NITROGLYCERIN
     Indication: CHEST PAIN
     Dosage: PLACE 1 TAB UNDER THE TONGUE EVERY 5 MINUTES AS NEEDED FOR CHEST PAIN
     Route: 060
  18. POLYETHYLENE GLYCOL [Concomitant]
     Active Substance: POLYETHYLENE GLYCOLS
     Indication: PRODUCT USED FOR UNKNOWN INDICATION
     Dosage: DISSOLVE 1 PACKET IN 4 TO 8 OUNCES OF LIQUID AND TAKE BY MOUTH ONCE A DAY
     Route: 048
  19. CALCIUM CARBONATE. [Concomitant]
     Active Substance: CALCIUM CARBONATE
     Indication: PRODUCT USED FOR UNKNOWN INDICATION
     Route: 048
  20. LIDEX [Concomitant]
     Active Substance: FLUOCINONIDE
     Indication: PRODUCT USED FOR UNKNOWN INDICATION
     Dosage: 0.05% GEL?APPLY TOPICALLY 2 TIMES DAILY AS NEEDED
     Route: 061
  21. FLONASE [Concomitant]
     Active Substance: FLUTICASONE PROPIONATE
     Indication: PRODUCT USED FOR UNKNOWN INDICATION
     Dosage: NASAL SPRAY
     Route: 050
  22. CYMBALTA [Concomitant]
     Active Substance: DULOXETINE HYDROCHLORIDE
     Indication: PRODUCT USED FOR UNKNOWN INDICATION
     Route: 048
  23. ATROVENT [Concomitant]
     Active Substance: IPRATROPIUM BROMIDE
     Indication: PRODUCT USED FOR UNKNOWN INDICATION
     Dosage: 0.06% NASAL SPRAY
     Route: 050
  24. TOPROL XL [Concomitant]
     Active Substance: METOPROLOL SUCCINATE
     Indication: PRODUCT USED FOR UNKNOWN INDICATION
     Route: 048
  25. NAPROSYN [Concomitant]
     Active Substance: NAPROXEN
     Indication: PRODUCT USED FOR UNKNOWN INDICATION
     Dosage: TAKE 1 TAB BY MOUTH 2 TIMES DAILY WITH MEALS
     Route: 048

REACTIONS (1)
  - Upper gastrointestinal haemorrhage [Unknown]

NARRATIVE: CASE EVENT DATE: 20141215
